FAERS Safety Report 17981932 (Version 4)
Quarter: 2021Q2

REPORT INFORMATION
  Report Type: Spontaneous
  Country: US (occurrence: US)
  Receive Date: 20200706
  Receipt Date: 20210624
  Transmission Date: 20210717
  Serious: Yes (Other)
  Sender: FDA-Public Use
  Company Number: US-GILEAD-2020-0475831

PATIENT
  Age: 61 Year
  Sex: Female
  Weight: 81.6 kg

DRUGS (39)
  1. NORVIR [Concomitant]
     Active Substance: RITONAVIR
     Indication: HIV INFECTION
  2. TRIUMEQ [Concomitant]
     Active Substance: ABACAVIR SULFATE\DOLUTEGRAVIR SODIUM\LAMIVUDINE
     Indication: HIV INFECTION
  3. ZERIT [Concomitant]
     Active Substance: STAVUDINE
  4. FOSAMAX [Concomitant]
     Active Substance: ALENDRONATE SODIUM
  5. GLIPIZIDE. [Concomitant]
     Active Substance: GLIPIZIDE
  6. ACETAMINOPHEN. [Concomitant]
     Active Substance: ACETAMINOPHEN
  7. PREDNISONE. [Concomitant]
     Active Substance: PREDNISONE
  8. VIREAD [Suspect]
     Active Substance: TENOFOVIR DISOPROXIL FUMARATE
     Dosage: UNK
     Route: 048
     Dates: start: 20020916, end: 20130114
  9. TRUVADA [Suspect]
     Active Substance: EMTRICITABINE\TENOFOVIR DISOPROXIL FUMARATE
     Indication: HIV INFECTION
     Dosage: UNK
     Route: 048
     Dates: start: 2013, end: 2015
  10. TRUVADA [Suspect]
     Active Substance: EMTRICITABINE\TENOFOVIR DISOPROXIL FUMARATE
     Dosage: UNK
     Route: 048
     Dates: start: 20130114, end: 20150821
  11. ATORVASTATIN [Concomitant]
     Active Substance: ATORVASTATIN
  12. ESOMEPRAZOLE. [Concomitant]
     Active Substance: ESOMEPRAZOLE MAGNESIUM
  13. KALETRA [Concomitant]
     Active Substance: LOPINAVIR\RITONAVIR
     Indication: HIV INFECTION
  14. SYMBICORT [Concomitant]
     Active Substance: BUDESONIDE\FORMOTEROL FUMARATE DIHYDRATE
  15. ALBUTEROL SULFATE. [Concomitant]
     Active Substance: ALBUTEROL SULFATE
  16. VIREAD [Suspect]
     Active Substance: TENOFOVIR DISOPROXIL FUMARATE
     Indication: HIV INFECTION
     Dosage: UNK
     Route: 048
     Dates: start: 2001, end: 2013
  17. EPZICOM [Concomitant]
     Active Substance: ABACAVIR SULFATE\LAMIVUDINE
     Indication: HIV INFECTION
  18. PREZISTA [Concomitant]
     Active Substance: DARUNAVIR ETHANOLATE
  19. VIDEX [Concomitant]
     Active Substance: DIDANOSINE
     Indication: HIV INFECTION
  20. TYLENOL [Concomitant]
     Active Substance: ACETAMINOPHEN
  21. TRAZODONE [Concomitant]
     Active Substance: TRAZODONE HYDROCHLORIDE
  22. FLOVENT HFA [Concomitant]
     Active Substance: FLUTICASONE PROPIONATE
  23. LOPRESSOR [Concomitant]
     Active Substance: METOPROLOL TARTRATE
  24. ALENDRONATE [Concomitant]
     Active Substance: ALENDRONATE SODIUM
  25. CORTISONE [Concomitant]
     Active Substance: CORTISONE
  26. LOVENOX [Concomitant]
     Active Substance: ENOXAPARIN SODIUM
  27. OMEPRAZOLE. [Concomitant]
     Active Substance: OMEPRAZOLE
  28. COLACE [Concomitant]
     Active Substance: DOCUSATE SODIUM
  29. AMOXICILLIN. [Concomitant]
     Active Substance: AMOXICILLIN
  30. XOPENEX [Concomitant]
     Active Substance: LEVALBUTEROL HYDROCHLORIDE
  31. NORVASC [Concomitant]
     Active Substance: AMLODIPINE BESYLATE
  32. LIPITOR [Concomitant]
     Active Substance: ATORVASTATIN CALCIUM
  33. TRIAMCINOLONE [Concomitant]
     Active Substance: TRIAMCINOLONE
  34. LEVAQUIN [Concomitant]
     Active Substance: LEVOFLOXACIN
  35. VIREAD [Suspect]
     Active Substance: TENOFOVIR DISOPROXIL FUMARATE
     Dosage: UNK
     Route: 048
     Dates: start: 200208, end: 2013
  36. ASPIRIN. [Concomitant]
     Active Substance: ASPIRIN
  37. FLEET LAXATIVE [Concomitant]
  38. TETRACYCLINE [Concomitant]
     Active Substance: TETRACYCLINE
  39. SUSTIVA [Concomitant]
     Active Substance: EFAVIRENZ
     Indication: HIV INFECTION

REACTIONS (9)
  - Renal failure [Unknown]
  - Osteopenia [Recovered/Resolved]
  - Pain [Unknown]
  - Bone density decreased [Unknown]
  - Chronic kidney disease [Unknown]
  - Osteopenia [Recovered/Resolved]
  - Emotional distress [Unknown]
  - End stage renal disease [Not Recovered/Not Resolved]
  - Acute kidney injury [Recovered/Resolved]

NARRATIVE: CASE EVENT DATE: 200708
